FAERS Safety Report 13911333 (Version 5)
Quarter: 2018Q4

REPORT INFORMATION
  Report Type: Report from Study
  Country: CA (occurrence: CA)
  Receive Date: 20170828
  Receipt Date: 20181130
  Transmission Date: 20190204
  Serious: Yes (Hospitalization, Other)
  Sender: FDA-Public Use
  Company Number: CA-JNJFOC-20170822382

PATIENT
  Age: 60 Year
  Sex: Male
  Weight: 91.8 kg

DRUGS (1)
  1. REMICADE [Suspect]
     Active Substance: INFLIXIMAB
     Indication: COLITIS ULCERATIVE
     Route: 042
     Dates: start: 20150722

REACTIONS (7)
  - Off label use [Unknown]
  - Disorientation [Unknown]
  - Basal cell carcinoma [Not Recovered/Not Resolved]
  - Pyrexia [Unknown]
  - Tremor [Unknown]
  - Fall [Unknown]
  - Product use issue [Unknown]

NARRATIVE: CASE EVENT DATE: 20150722
